FAERS Safety Report 9725284 (Version 1)
Quarter: 2013Q4

REPORT INFORMATION
  Report Type: Spontaneous
  Country: US (occurrence: None)
  Receive Date: 20131129
  Receipt Date: 20131129
  Transmission Date: 20140711
  Serious: Yes (Other)
  Sender: FDA-Public Use
  Company Number: AUR-APL-2013-09913

PATIENT
  Age: 38 Year
  Sex: Male

DRUGS (1)
  1. TRIMETHOPRIM-SULFAMETHOXAZOLE [Suspect]
     Indication: PROSTATITIS

REACTIONS (8)
  - Diarrhoea [None]
  - Chromaturia [None]
  - Cholecystitis acute [None]
  - Dermatitis exfoliative [None]
  - Gastritis erosive [None]
  - Drug reaction with eosinophilia and systemic symptoms [None]
  - Epstein-Barr virus antibody positive [None]
  - Vasculitis [None]
